FAERS Safety Report 6211709-1 (Version None)
Quarter: 2009Q2

REPORT INFORMATION
  Report Type: 
  Country: None (occurrence: None)
  Receive Date: 20090522
  Receipt Date: 20090331
  Transmission Date: 20091009
  Serious: No
  Sender: FDA-Public Use
  Company Number: 8044442

PATIENT
  Sex: Female
  Weight: 94 kg

DRUGS (5)
  1. CIMZIA [Suspect]
     Indication: CROHN'S DISEASE
     Dosage: 400 MG SC
     Route: 058
     Dates: start: 20090323
  2. VITAMIN B-12 [Concomitant]
  3. IRON [Concomitant]
  4. LIALDA [Concomitant]
  5. DICYCLOMINE [Concomitant]

REACTIONS (3)
  - HYPOKALAEMIA [None]
  - MALAISE [None]
  - NAUSEA [None]
